FAERS Safety Report 5249165-2 (Version None)
Quarter: 2007Q1

REPORT INFORMATION
  Report Type: 
  Country: None (occurrence: None)
  Receive Date: 20070223
  Receipt Date: 20070209
  Transmission Date: 20070707
  Serious: Yes (Hospitalization, Disabling)
  Sender: FDA-Public Use
  Company Number: POMP-10874

PATIENT
  Age: 3 Year
  Sex: Male
  Weight: 14.9 kg

DRUGS (9)
  1. MYOZYME [Suspect]
     Indication: GLYCOGEN STORAGE DISEASE TYPE II
     Dosage: 20 MG/KG Q2WKS IV
     Route: 042
     Dates: start: 20060815, end: 20061017
  2. ALPHA-GLUCOSIDASE (HUMAN, RECOMBINANT, CHO CELLS, GENZYME) [Suspect]
     Indication: GLYCOGEN STORAGE DISEASE TYPE II
     Dosage: 20 MG/KG Q2WKS IV
     Route: 042
     Dates: start: 20050629, end: 20060609
  3. ALPHA-GLUCOSIDASE (HUMAN, RECOMBINANT, CHO CELLS, GENZYME) [Suspect]
     Indication: GLYCOGEN STORAGE DISEASE TYPE II
     Dosage: 20 MG/KG Q2WKS IV
     Route: 042
     Dates: start: 20030925, end: 20050609
  4. AMBROXOL [Concomitant]
  5. CARDIOLOL [Concomitant]
  6. ISOMIL [Concomitant]
  7. BIOCAL TAB [Concomitant]
  8. ANTIBIOPHILUS [Concomitant]
  9. MYOZYME [Suspect]

REACTIONS (37)
  - ALANINE AMINOTRANSFERASE INCREASED [None]
  - ARTHROPOD BITE [None]
  - ASPARTATE AMINOTRANSFERASE INCREASED [None]
  - BAND NEUTROPHIL PERCENTAGE INCREASED [None]
  - BEHCET'S SYNDROME [None]
  - BLISTER [None]
  - BLOOD IMMUNOGLOBULIN G INCREASED [None]
  - BLOOD LACTATE DEHYDROGENASE INCREASED [None]
  - BONE DENSITY DECREASED [None]
  - DECUBITUS ULCER [None]
  - DRY GANGRENE [None]
  - ECZEMA [None]
  - ENTEROCOLITIS [None]
  - GASTROENTERITIS ROTAVIRUS [None]
  - GLUCAGONOMA [None]
  - ILL-DEFINED DISORDER [None]
  - IMMUNE COMPLEX LEVEL INCREASED [None]
  - IMPAIRED HEALING [None]
  - ISCHAEMIA [None]
  - LEUKOCYTOCLASTIC VASCULITIS [None]
  - LOBAR PNEUMONIA [None]
  - LOWER RESPIRATORY TRACT INFECTION [None]
  - LYMPHOCYTE MORPHOLOGY ABNORMAL [None]
  - LYMPHOCYTE PERCENTAGE DECREASED [None]
  - MONOCYTE COUNT INCREASED [None]
  - NO THERAPEUTIC RESPONSE [None]
  - POST INFLAMMATORY PIGMENTATION CHANGE [None]
  - PSEUDOMONAS INFECTION [None]
  - PURULENCE [None]
  - SKIN INFLAMMATION [None]
  - SKIN INJURY [None]
  - SKIN NECROSIS [None]
  - SKIN ULCER [None]
  - SUPRAVENTRICULAR TACHYCARDIA [None]
  - UPPER RESPIRATORY TRACT INFECTION [None]
  - VASCULITIS [None]
  - WHITE BLOOD CELL COUNT INCREASED [None]
